FAERS Safety Report 8431664-3 (Version None)
Quarter: 2012Q2

REPORT INFORMATION
  Report Type: 
  Country: None (occurrence: None)
  Receive Date: 20120613
  Receipt Date: 20120601
  Transmission Date: 20120825
  Serious: Yes (Hospitalization)
  Sender: FDA-Public Use
  Company Number: US-ELI_LILLY_AND_COMPANY-US201206000951

PATIENT
  Sex: Female

DRUGS (10)
  1. LIPITOR [Concomitant]
  2. PROPYLENE GLYCOL [Concomitant]
  3. SYNTHROID [Concomitant]
  4. PROZAC [Suspect]
     Indication: DEPRESSION
     Dosage: 40 MG, EACH MORNING
  5. PROZAC [Suspect]
     Dosage: 20 MG, EACH EVENING
  6. FUROSEMIDE [Concomitant]
  7. LYRICA [Concomitant]
  8. FLUTICASONE FUROATE [Concomitant]
  9. PLAVIX [Concomitant]
  10. NEXIUM [Concomitant]

REACTIONS (8)
  - ARTHRALGIA [None]
  - KNEE OPERATION [None]
  - DEPRESSION [None]
  - ABNORMAL DREAMS [None]
  - MEMORY IMPAIRMENT [None]
  - FEELING ABNORMAL [None]
  - THINKING ABNORMAL [None]
  - DRUG WITHDRAWAL SYNDROME [None]
